FAERS Safety Report 6048401-2 (Version None)
Quarter: 2009Q1

REPORT INFORMATION
  Report Type: 
  Country: None (occurrence: None)
  Receive Date: 20090123
  Receipt Date: 20090116
  Transmission Date: 20090719
  Serious: Yes (Hospitalization)
  Sender: FDA-Public Use
  Company Number: A0751912A

PATIENT
  Age: 67 Year
  Sex: Male
  Weight: 113.6 kg

DRUGS (4)
  1. AVANDIA [Suspect]
     Dosage: 8MG PER DAY
     Route: 048
     Dates: start: 20020101, end: 20051201
  2. GLARGINE [Concomitant]
     Dates: start: 20050801
  3. DIABETA [Concomitant]
     Dates: start: 20020819, end: 20040720
  4. GLUCOTROL [Concomitant]
     Dates: start: 20040801

REACTIONS (7)
  - ACUTE CORONARY SYNDROME [None]
  - CARDIAC FAILURE CONGESTIVE [None]
  - CORONARY ARTERY DISEASE [None]
  - FATIGUE [None]
  - HYPERTENSION [None]
  - MYOCARDIAL INFARCTION [None]
  - PAIN [None]
